FAERS Safety Report 10183459 (Version 1)
Quarter: 2014Q2

REPORT INFORMATION
  Report Type: Spontaneous
  Country: CN (occurrence: CN)
  Receive Date: 20140520
  Receipt Date: 20140520
  Transmission Date: 20141212
  Serious: Yes (Other)
  Sender: FDA-Public Use
  Company Number: CN-ASTRAZENECA-2014SE33355

PATIENT
  Age: 86 Year
  Sex: Male

DRUGS (9)
  1. NEXIUM [Suspect]
     Indication: GASTRIC HAEMORRHAGE
     Route: 048
     Dates: start: 20080101, end: 20130121
  2. NEXIUM [Suspect]
     Indication: GASTRIC MUCOSAL LESION
     Route: 048
     Dates: start: 20080101, end: 20130121
  3. PLAVIX [Concomitant]
  4. ASPIRIN [Concomitant]
  5. NORVASC [Concomitant]
  6. IMDUR [Concomitant]
  7. SIMVASTATIN [Concomitant]
  8. ATORVASTATIN [Concomitant]
  9. ANTIBIOTICS [Concomitant]

REACTIONS (2)
  - Gastric haemorrhage [Unknown]
  - Drug ineffective for unapproved indication [Unknown]
